FAERS Safety Report 4736285-1 (Version None)
Quarter: 2005Q3

REPORT INFORMATION
  Report Type: 
  Country: None (occurrence: None)
  Receive Date: 20050805
  Receipt Date: 20050805
  Transmission Date: 20060218
  Serious: Yes (Death)
  Sender: FDA-Public Use
  Company Number: None

PATIENT
  Age: 84 Year
  Sex: Male
  Weight: 49.8957 kg

DRUGS (4)
  1. NATRECOR [Suspect]
     Indication: CARDIAC FAILURE CONGESTIVE
     Dosage: 2 MCG/KG BOLUS 0.01 MCG/KG/ MIN X 48 H
     Dates: start: 20050308, end: 20050310
  2. LASIX [Concomitant]
  3. TOPROL-XL [Concomitant]
  4. OXYCONTIN [Concomitant]

REACTIONS (2)
  - CARDIAC FAILURE CONGESTIVE [None]
  - RENAL FAILURE [None]
